FAERS Safety Report 8231417-5 (Version None)
Quarter: 2012Q1

REPORT INFORMATION
  Report Type: 
  Country: None (occurrence: None)
  Receive Date: 20120323
  Receipt Date: 20120316
  Transmission Date: 20120608
  Serious: Yes (Other)
  Sender: FDA-Public Use
  Company Number: US-AMGEN-USASP2012017797

PATIENT

DRUGS (1)
  1. ENBREL [Suspect]
     Dosage: 25 MG, BID
     Route: 064
     Dates: start: 20070101, end: 20070101

REACTIONS (1)
  - JAUNDICE NEONATAL [None]
